FAERS Safety Report 8001121-7 (Version None)
Quarter: 2011Q4

REPORT INFORMATION
  Report Type: 
  Country: None (occurrence: None)
  Receive Date: 20111222
  Receipt Date: 20111219
  Transmission Date: 20120403
  Serious: Yes (Hospitalization)
  Sender: FDA-Public Use
  Company Number: SE-BAYER-201044448GPV

PATIENT
  Age: 63 Year
  Sex: Female
  Weight: 65 kg

DRUGS (8)
  1. AZATHIOPRINE [Concomitant]
     Indication: AUTOIMMUNE HEPATITIS
     Dosage: 100 MG (DAILY DOSE), QD, ORAL
     Route: 048
     Dates: start: 20050902
  2. PREDNISOLONE [Concomitant]
     Indication: AUTOIMMUNE HEPATITIS
     Dosage: 7.5 MG (DAILY DOSE), QD, ORAL
     Route: 048
     Dates: start: 20040927
  3. SPIRONOLACTONE [Concomitant]
     Dosage: 50 MG (DAILY DOSE), QD, ORAL
     Route: 048
     Dates: start: 20050902
  4. WARFARIN SODIUM [Concomitant]
     Dosage: 2.5 MG (DAILY DOSE), QD, ORAL
     Route: 048
     Dates: start: 20020807, end: 20101013
  5. NEXAVAR [Suspect]
     Indication: HEPATIC NEOPLASM MALIGNANT
     Dosage: 800 MG, QD
     Route: 048
     Dates: start: 20100113, end: 20101028
  6. DIMETIKON [Concomitant]
     Dosage: 200 MG (DAILY DOSE), QD, ORAL
     Route: 048
     Dates: start: 20060419
  7. RISEDRONIC ACID [Concomitant]
     Dosage: 5 MG (DAILY DOSE), QD, ORAL
     Route: 048
     Dates: start: 20060130
  8. FOLIC ACID [Concomitant]
     Indication: AUTOIMMUNE HEPATITIS
     Dosage: 10 MG (DAILY DOSE), QD, ORAL
     Route: 048
     Dates: start: 20040927

REACTIONS (4)
  - DIZZINESS [None]
  - FATIGUE [None]
  - INFECTION [None]
  - FALL [None]
